FAERS Safety Report 6568505-5 (Version None)
Quarter: 2010Q1

REPORT INFORMATION
  Report Type: 
  Country: None (occurrence: None)
  Receive Date: 20100203
  Receipt Date: 20100128
  Transmission Date: 20100710
  Serious: Yes (Hospitalization)
  Sender: FDA-Public Use
  Company Number: B0630839A

PATIENT
  Sex: Female

DRUGS (5)
  1. ZOFRAN [Suspect]
     Dosage: 8MG PER DAY
     Route: 042
     Dates: start: 20091214, end: 20091215
  2. ELOXATIN [Suspect]
     Dosage: 133MG PER DAY
     Route: 042
     Dates: start: 20091214, end: 20091214
  3. FLUOROURACIL [Suspect]
     Dosage: 939G PER DAY
     Route: 042
     Dates: start: 20091214, end: 20091216
  4. RANITIDINA [Concomitant]
     Dosage: 50MG PER DAY
     Route: 042
     Dates: start: 20091214, end: 20091214
  5. PREDNISONE [Concomitant]
     Dosage: 1TAB PER DAY
     Route: 048
     Dates: start: 20091214, end: 20091214

REACTIONS (1)
  - MYOCARDIAL ISCHAEMIA [None]
